FAERS Safety Report 20966715 (Version 1)
Quarter: 2022Q2

REPORT INFORMATION
  Report Type: Spontaneous
  Country: FR (occurrence: FR)
  Receive Date: 20220616
  Receipt Date: 20220616
  Transmission Date: 20220721
  Serious: Yes (Hospitalization)
  Sender: FDA-Public Use
  Company Number: None

PATIENT
  Age: 61 Year
  Sex: Female
  Weight: 68 kg

DRUGS (12)
  1. FUROSEMIDE [Suspect]
     Active Substance: FUROSEMIDE
     Indication: Acute pulmonary oedema
     Route: 042
     Dates: start: 20190301, end: 20190306
  2. PREDNISONE [Concomitant]
     Active Substance: PREDNISONE
  3. FERROUS SULFATE\FOLIC ACID [Concomitant]
     Active Substance: FERROUS SULFATE\FOLIC ACID
  4. POTASSIUM CHLORIDE [Concomitant]
     Active Substance: POTASSIUM CHLORIDE
  5. INIPOMP [Concomitant]
     Active Substance: PANTOPRAZOLE SODIUM
  6. CERTICAN [Concomitant]
     Active Substance: EVEROLIMUS
  7. LYRICA [Concomitant]
     Active Substance: PREGABALIN
  8. PYRIDOXINE [Concomitant]
     Active Substance: PYRIDOXINE
  9. CALCIUM CARBONATE\CHOLECALCIFEROL [Concomitant]
     Active Substance: CALCIUM CARBONATE\CHOLECALCIFEROL
     Dosage: STRENGTH: 500 MG/200 I.U, SUCKABLE TABLET
  10. TACROLIMUS [Concomitant]
     Active Substance: TACROLIMUS
  11. ATOVAQUONE [Concomitant]
     Active Substance: ATOVAQUONE
  12. ZITHROMAX [Concomitant]
     Active Substance: AZITHROMYCIN DIHYDRATE

REACTIONS (1)
  - Acute kidney injury [Recovered/Resolved]

NARRATIVE: CASE EVENT DATE: 20190301
